FAERS Safety Report 21460377 (Version 2)
Quarter: 2022Q4

REPORT INFORMATION
  Report Type: Spontaneous
  Country: CH (occurrence: CH)
  Receive Date: 20221014
  Receipt Date: 20221111
  Transmission Date: 20230112
  Serious: Yes (Hospitalization, Other)
  Sender: FDA-Public Use
  Company Number: CH-MALLINCKRODT-T202205442

PATIENT
  Age: 73 Year
  Sex: Male

DRUGS (6)
  1. OFIRMEV [Interacting]
     Active Substance: ACETAMINOPHEN
     Indication: Analgesic therapy
     Dosage: 4 GRAM, QD
     Route: 065
  2. FLUCLOXACILLIN [Interacting]
     Active Substance: FLUCLOXACILLIN
     Indication: Endocarditis staphylococcal
     Dosage: 2 GRAM, 6 TIMES A DAY FOR 3 WEEKS
     Route: 065
  3. FLUCLOXACILLIN [Interacting]
     Active Substance: FLUCLOXACILLIN
     Indication: Infection
  4. FLUCLOXACILLIN [Interacting]
     Active Substance: FLUCLOXACILLIN
     Indication: Knee arthroplasty
  5. CIPROFLOXACIN [Concomitant]
     Active Substance: CIPROFLOXACIN
     Indication: Infection
     Dosage: FOR 3 MONTHS
     Route: 065
  6. RIFAMPIN [Concomitant]
     Active Substance: RIFAMPIN
     Indication: Infection
     Dosage: FOR 3 MONTHS
     Route: 065

REACTIONS (2)
  - Pyroglutamic acidosis [Recovering/Resolving]
  - Drug interaction [Recovering/Resolving]
